FAERS Safety Report 4738994-7 (Version None)
Quarter: 2005Q3

REPORT INFORMATION
  Report Type: 
  Country: None (occurrence: None)
  Receive Date: 20050801
  Receipt Date: 20050513
  Transmission Date: 20060218
  Serious: Yes (Disabling)
  Sender: FDA-Public Use
  Company Number: 214246

PATIENT
  Age: 5 Year
  Sex: Female

DRUGS (4)
  1. RITUXAN [Suspect]
     Indication: NEPHROTIC SYNDROME
     Dosage: 375 MG/M2, 1/WEEK, INTRAVENOUS
     Route: 042
  2. PREDNISONE [Concomitant]
  3. COZAAR [Concomitant]
  4. VASOTEC [Concomitant]

REACTIONS (1)
  - ARTHRITIS BACTERIAL [None]
